FAERS Safety Report 8366601-3 (Version None)
Quarter: 2012Q2

REPORT INFORMATION
  Report Type: 
  Country: None (occurrence: None)
  Receive Date: 20120517
  Receipt Date: 20120510
  Transmission Date: 20120825
  Serious: Yes (Death)
  Sender: FDA-Public Use
  Company Number: AU-PFIZER INC-2012098754

PATIENT
  Age: 59 Year
  Sex: Female
  Weight: 83 kg

DRUGS (6)
  1. RABEPRAZOLE SODIUM [Concomitant]
  2. BOSENTAN [Suspect]
     Indication: PULMONARY ARTERIAL HYPERTENSION
     Dosage: 125 MG, 2X/DAY
     Route: 048
     Dates: start: 20090901
  3. SPIRACTIN [Concomitant]
  4. ILOPROST [Suspect]
     Indication: PULMONARY ARTERIAL HYPERTENSION
     Dosage: 20 UG, 6X/DAY
     Route: 055
     Dates: start: 20100101
  5. LASIX [Concomitant]
  6. REVATIO [Suspect]
     Indication: PULMONARY ARTERIAL HYPERTENSION
     Dosage: 20 MG, 3X/DAY
     Route: 048
     Dates: start: 20100101

REACTIONS (1)
  - RESPIRATORY ARREST [None]
